FAERS Safety Report 5838060-3 (Version None)
Quarter: 2008Q3

REPORT INFORMATION
  Report Type: 
  Country: None (occurrence: None)
  Receive Date: 20080808
  Receipt Date: 20080424
  Transmission Date: 20090109
  Serious: No
  Sender: FDA-Public Use
  Company Number: A0724569A

PATIENT
  Sex: Female

DRUGS (6)
  1. PAXIL [Suspect]
     Indication: PANIC DISORDER
     Dosage: 20MG PER DAY
     Route: 048
     Dates: start: 20051201
  2. TYLENOL [Concomitant]
  3. LIPITOR [Concomitant]
  4. SINGULAIR [Concomitant]
  5. ALBUTEROL [Concomitant]
  6. BUSPAR [Concomitant]

REACTIONS (5)
  - AGITATION [None]
  - AGORAPHOBIA [None]
  - ANXIETY [None]
  - PANIC ATTACK [None]
  - SOMNOLENCE [None]
